FAERS Safety Report 10008417 (Version 1)
Quarter: 2014Q1

REPORT INFORMATION
  Report Type: Report from Study
  Country: BD (occurrence: BD)
  Receive Date: 20140313
  Receipt Date: 20140313
  Transmission Date: 20141002
  Serious: Yes (Death, Other)
  Sender: FDA-Public Use
  Company Number: PHHY2014BD030759

PATIENT
  Sex: 0

DRUGS (2)
  1. ACLASTA [Suspect]
     Indication: OSTEOPOROSIS
     Dosage: UNK
     Route: 042
     Dates: start: 20120312
  2. ACLASTA [Suspect]
     Dosage: UNK
     Route: 042
     Dates: start: 20130307

REACTIONS (4)
  - Death [Fatal]
  - Oesophageal carcinoma [Fatal]
  - Varicella [Unknown]
  - Hypersensitivity [Unknown]
